FAERS Safety Report 5743726-X (Version None)
Quarter: 2008Q2

REPORT INFORMATION
  Report Type: 
  Country: None (occurrence: None)
  Receive Date: 20080516
  Receipt Date: 20080304
  Transmission Date: 20081010
  Serious: Yes (Hospitalization)
  Sender: FDA-Public Use
  Company Number: 2008S1000096

PATIENT
  Sex: Male

DRUGS (2)
  1. CUBICIN [Suspect]
     Indication: CELLULITIS
     Dosage: 6 MG/KG;QD;IV
     Route: 042
     Dates: start: 20080227
  2. VORICONAZOLE [Concomitant]

REACTIONS (1)
  - MENTAL STATUS CHANGES [None]
